FAERS Safety Report 19950033 (Version 1)
Quarter: 2021Q4

REPORT INFORMATION
  Report Type: Other
  Country: CN (occurrence: CN)
  Receive Date: 20211013
  Receipt Date: 20211013
  Transmission Date: 20220303
  Serious: Yes (Death)
  Sender: FDA-Public Use
  Company Number: CN-ROCHE-2060743

PATIENT
  Sex: Female
  Weight: 65 kg

DRUGS (1)
  1. AVASTIN [Suspect]
     Active Substance: BEVACIZUMAB
     Indication: Non-small cell lung cancer
     Route: 041
     Dates: start: 20170915

REACTIONS (2)
  - Condition aggravated [Fatal]
  - Unevaluable event [Unknown]
